FAERS Safety Report 8845163 (Version 1)
Quarter: 2012Q4

REPORT INFORMATION
  Report Type: Spontaneous
  Country: US (occurrence: None)
  Receive Date: 20121016
  Receipt Date: 20121016
  Transmission Date: 20130627
  Serious: Yes (Hospitalization)
  Sender: FDA-Public Use
  Company Number: None

PATIENT
  Age: 68 Year
  Sex: Male
  Weight: 172.7 kg

DRUGS (13)
  1. LISINOPRIL [Suspect]
     Indication: HYPERTENSION
     Route: 048
  2. HCTZ [Suspect]
     Indication: HYPERTENSION
     Route: 048
  3. ZOSYN [Suspect]
     Indication: INFECTED CYST
  4. NAPROSYN [Suspect]
     Indication: LOW BACK PAIN
  5. IMODIUM [Concomitant]
  6. PRAVACHOL [Concomitant]
  7. NORVASC [Concomitant]
  8. HYDRALAZINE [Concomitant]
  9. HUMULIN [Concomitant]
  10. IMDUR [Concomitant]
  11. LEVAQUIN [Concomitant]
  12. FLAGYL [Concomitant]
  13. O2 2L NC [Concomitant]

REACTIONS (6)
  - Renal failure acute [None]
  - Hypoglycaemia [None]
  - Unresponsive to stimuli [None]
  - Blood creatinine increased [None]
  - Hypophagia [None]
  - Tubulointerstitial nephritis [None]
